FAERS Safety Report 5421977-1 (Version None)
Quarter: 2007Q3

REPORT INFORMATION
  Report Type: 
  Country: None (occurrence: None)
  Receive Date: 20070822
  Receipt Date: 20070817
  Transmission Date: 20080115
  Serious: Yes (Other)
  Sender: FDA-Public Use
  Company Number: PHEH2007US09416

PATIENT
  Age: 53 Year
  Sex: Female

DRUGS (8)
  1. ZOMETA [Suspect]
     Indication: METASTASES TO BONE
     Dosage: 4 MG, QMO
     Route: 042
     Dates: start: 20021210, end: 20070517
  2. HERCEPTIN [Concomitant]
     Indication: BREAST CANCER
     Dosage: 154 MG, QW
     Route: 042
  3. NAVELBINE [Concomitant]
     Indication: BREAST CANCER
     Dosage: 25 MG, QW
     Route: 042
     Dates: start: 20070628
  4. DECADRON [Concomitant]
     Dosage: 4 MG, QW
     Route: 042
  5. CYTOXAN [Concomitant]
     Indication: BREAST CANCER
     Dosage: 50 MG, TID
     Dates: start: 20070614, end: 20070628
  6. METHOTREXATE [Concomitant]
     Indication: BREAST CANCER
     Dosage: 50 MG, UNK
     Route: 042
     Dates: start: 20070614, end: 20070628
  7. FLUOROURACIL [Concomitant]
     Indication: BREAST CANCER
     Dosage: 500 MG, UNK
     Route: 042
     Dates: start: 20070614, end: 20070628
  8. XELODA [Concomitant]
     Indication: BREAST CANCER
     Dosage: 500 MG, BID4SDO
     Dates: start: 20061001, end: 20070604

REACTIONS (3)
  - ABSCESS JAW [None]
  - OSTEONECROSIS [None]
  - PAIN IN JAW [None]
